FAERS Safety Report 8822565 (Version 3)
Quarter: 2012Q4

REPORT INFORMATION
  Report Type: 
  Country: US (occurrence: US)
  Receive Date: 20121003
  Receipt Date: 20121231
  Transmission Date: 20130627
  Serious: Yes (Other)
  Sender: FDA-Public Use
  Company Number: US-VERTEX PHARMACEUTICAL INC.-2012-020991

PATIENT
  Age: 53 None
  Sex: Female

DRUGS (3)
  1. VX-950 (TELAPREVIR) [Suspect]
     Indication: HEPATITIS C
     Dosage: 750 mg, tid
     Route: 048
     Dates: start: 20120821
  2. PEGASYS [Suspect]
     Indication: HEPATITIS C
     Dosage: 180 ?g, weekly
     Route: 058
     Dates: start: 20120821
  3. RIBASPHERE [Suspect]
     Indication: HEPATITIS C
     Dosage: 400 mg am, 600 mg
     Route: 048
     Dates: start: 20120821

REACTIONS (4)
  - Rash generalised [Recovered/Resolved]
  - Alopecia [Unknown]
  - Eye swelling [Unknown]
  - Auricular swelling [Unknown]
